FAERS Safety Report 20553921 (Version 1)
Quarter: 2022Q1

REPORT INFORMATION
  Report Type: Report from Study
  Country: CN (occurrence: CN)
  Receive Date: 20220304
  Receipt Date: 20220304
  Transmission Date: 20220423
  Serious: Yes (Life-Threatening, Hospitalization)
  Sender: FDA-Public Use
  Company Number: CN-AstraZeneca-2021A808603

PATIENT
  Age: 61 Year
  Sex: Male
  Weight: 61 kg

DRUGS (8)
  1. TRASTUZUMAB DERUXTECAN [Suspect]
     Active Substance: TRASTUZUMAB DERUXTECAN
     Indication: Adenocarcinoma gastric
     Dosage: 420 MG
     Route: 042
     Dates: start: 20210929, end: 20210929
  2. TRASTUZUMAB DERUXTECAN [Suspect]
     Active Substance: TRASTUZUMAB DERUXTECAN
     Dosage: 420 MG
     Route: 042
     Dates: start: 20211020, end: 20211020
  3. TRASTUZUMAB DERUXTECAN [Suspect]
     Active Substance: TRASTUZUMAB DERUXTECAN
     Dosage: 420 MG
     Route: 042
     Dates: start: 20211110, end: 20211110
  4. HERBALS\DIAMMONIUM GLYCYRRHIZINATE [Concomitant]
     Active Substance: HERBALS\DIAMMONIUM GLYCYRRHIZINATE
  5. BACILLUS LICHENIFORMIS [Concomitant]
     Indication: Prophylaxis
     Dosage: 250 MG
     Route: 048
     Dates: start: 20211020
  6. LEUCOGEN [Concomitant]
     Active Substance: LEUCOGEN
     Indication: White blood cell count decreased
     Dosage: 20 MG
     Route: 048
     Dates: start: 20211014
  7. LEUCOGEN [Concomitant]
     Active Substance: LEUCOGEN
     Indication: Neutrophil count decreased
  8. PHOSPHOLIPID [Concomitant]
     Active Substance: PHOSPHOLIPID
     Indication: Jaundice cholestatic

REACTIONS (2)
  - Platelet count decreased [Recovered/Resolved]
  - Jaundice cholestatic [Not Recovered/Not Resolved]

NARRATIVE: CASE EVENT DATE: 20211112
